FAERS Safety Report 10664741 (Version 1)
Quarter: 2014Q4

REPORT INFORMATION
  Report Type: Spontaneous
  Country: US (occurrence: None)
  Receive Date: 20141218
  Receipt Date: 20141218
  Transmission Date: 20150529
  Serious: Yes (Hospitalization)
  Sender: FDA-Public Use
  Company Number: None

PATIENT
  Age: 20 Year
  Sex: Female

DRUGS (7)
  1. XARELTO [Concomitant]
     Active Substance: RIVAROXABAN
  2. MESALAMINE. [Concomitant]
     Active Substance: MESALAMINE
  3. COUMADIN [Concomitant]
     Active Substance: WARFARIN SODIUM
  4. HUMIRA [Suspect]
     Active Substance: ADALIMUMAB
     Indication: CROHN^S DISEASE
     Route: 058
  5. LIALDA [Concomitant]
     Active Substance: MESALAMINE
  6. ZYRTEC [Concomitant]
     Active Substance: CETIRIZINE HYDROCHLORIDE
  7. PREDNISONE. [Concomitant]
     Active Substance: PREDNISONE

REACTIONS (3)
  - Rash [None]
  - Headache [None]
  - Lupus-like syndrome [None]

NARRATIVE: CASE EVENT DATE: 20141211
